FAERS Safety Report 7609778-7 (Version None)
Quarter: 2011Q3

REPORT INFORMATION
  Report Type: 
  Country: None (occurrence: None)
  Receive Date: 20110714
  Receipt Date: 20110705
  Transmission Date: 20111222
  Serious: Yes (Other)
  Sender: FDA-Public Use
  Company Number: DE-ELI_LILLY_AND_COMPANY-DE201107000612

PATIENT
  Age: 76 Year
  Sex: Female

DRUGS (2)
  1. ANALGESICS [Concomitant]
  2. FORTEO [Suspect]
     Indication: OSTEOPOROSIS
     Dosage: UNK, QD
     Route: 058
     Dates: start: 20110124

REACTIONS (2)
  - BURSITIS [None]
  - PANCREATITIS [None]
